FAERS Safety Report 5885447-9 (Version None)
Quarter: 2008Q3

REPORT INFORMATION
  Report Type: 
  Country: None (occurrence: None)
  Receive Date: 20080916
  Receipt Date: 20080908
  Transmission Date: 20090109
  Serious: Yes (Other)
  Sender: FDA-Public Use
  Company Number: US-SANOFI-SYNTHELABO-A03200802536

PATIENT
  Sex: Male
  Weight: 106.6 kg

DRUGS (11)
  1. CITALOPRAM HYDROBROMIDE [Concomitant]
     Indication: ANXIETY
     Route: 065
     Dates: start: 20070414
  2. LOVASTATIN [Concomitant]
     Indication: DIABETES MELLITUS
     Route: 065
     Dates: start: 20070618
  3. GLIMEPIRIDE [Concomitant]
     Indication: DIABETES MELLITUS
     Route: 065
     Dates: start: 20070417
  4. METFORMIN [Concomitant]
     Indication: DIABETES MELLITUS
     Route: 048
     Dates: start: 20070529
  5. AMBIEN CR [Suspect]
     Indication: INSOMNIA
     Route: 048
     Dates: start: 20080520, end: 20080606
  6. LIDODERM [Concomitant]
     Indication: DRUG USE FOR UNKNOWN INDICATION
     Dosage: UNK
     Route: 062
  7. MIRAPEX [Concomitant]
     Indication: DRUG USE FOR UNKNOWN INDICATION
     Dosage: 1 TABLET BY MOUTH FOR 5 DAYS THEN 2 TABLETS BY MOUTH EVERY DAY AT BEDTIME
     Route: 048
     Dates: start: 20080520
  8. PROTONIX [Concomitant]
     Indication: DRUG USE FOR UNKNOWN INDICATION
     Dosage: UNK
     Route: 065
  9. REQUIP [Concomitant]
     Indication: DRUG USE FOR UNKNOWN INDICATION
     Route: 048
     Dates: start: 20071130
  10. LAMISIL [Concomitant]
     Indication: DRUG USE FOR UNKNOWN INDICATION
     Route: 065
     Dates: start: 20071130
  11. CHANTIX [Concomitant]
     Indication: SMOKING CESSATION THERAPY
     Route: 048
     Dates: start: 20070417

REACTIONS (2)
  - AMNESIA [None]
  - SOMNAMBULISM [None]
